FAERS Safety Report 15743976 (Version 1)
Quarter: 2018Q4

REPORT INFORMATION
  Report Type: Report from Study
  Country: JP (occurrence: JP)
  Receive Date: 20181220
  Receipt Date: 20181220
  Transmission Date: 20190205
  Serious: Yes (Death, Life-Threatening, Hospitalization, Disabling, Other)
  Sender: FDA-Public Use
  Company Number: JP-BAYER-2017-231870

PATIENT
  Age: 20 Year
  Sex: Male

DRUGS (7)
  1. ADEMPAS [Suspect]
     Active Substance: RIOCIGUAT
     Indication: PULMONARY ARTERIAL HYPERTENSION
     Dosage: DAILY DOSE 3 MG
     Route: 048
     Dates: start: 20150715, end: 20150716
  2. EPOPROSTENOL. [Concomitant]
     Active Substance: EPOPROSTENOL
     Dosage: UNK
  3. FLOLAN [Suspect]
     Active Substance: EPOPROSTENOL SODIUM
     Dosage: UNK
     Route: 042
  4. NEXAVAR [Suspect]
     Active Substance: SORAFENIB
     Indication: CARDIAC FAILURE
     Dosage: DAILY DOSE 200 MG
     Route: 048
     Dates: start: 20160119
  5. MACITENTAN [Concomitant]
     Active Substance: MACITENTAN
     Route: 048
  6. ADEMPAS [Suspect]
     Active Substance: RIOCIGUAT
     Indication: PULMONARY ARTERIAL HYPERTENSION
     Dosage: DAILY DOSE 7.5 MG
     Route: 048
     Dates: start: 20150717, end: 20161019
  7. OPSUMIT [Concomitant]
     Active Substance: MACITENTAN
     Dosage: DAILY DOSE 10 MG
     Route: 048

REACTIONS (14)
  - Hypoxia [Recovering/Resolving]
  - Product use in unapproved indication [None]
  - Acute kidney injury [Fatal]
  - Platelet count decreased [Not Recovered/Not Resolved]
  - Pneumonia aspiration [Not Recovered/Not Resolved]
  - Right ventricular failure [Recovering/Resolving]
  - Off label use [None]
  - Right ventricular failure [Fatal]
  - Atelectasis [Recovered/Resolved]
  - Platelet count decreased [Recovering/Resolving]
  - Anaemia [Recovering/Resolving]
  - Septic shock [Fatal]
  - Pulmonary haemorrhage [Recovered/Resolved with Sequelae]
  - Haemoptysis [Recovering/Resolving]

NARRATIVE: CASE EVENT DATE: 20151214
